FAERS Safety Report 11361814 (Version 1)
Quarter: 2015Q3

REPORT INFORMATION
  Report Type: Report from Study
  Country: IL (occurrence: IL)
  Receive Date: 20150810
  Receipt Date: 20150810
  Transmission Date: 20151125
  Serious: Yes (Hospitalization)
  Sender: FDA-Public Use
  Company Number: PHHY2015IL093209

PATIENT
  Sex: Male
  Weight: 105 kg

DRUGS (1)
  1. SANDOSTATIN LAR DEPOT [Suspect]
     Active Substance: OCTREOTIDE ACETATE
     Indication: ACROMEGALY
     Dosage: 30 MG, QMO (1QW4, ONCE EVERY 28 DAYS)
     Route: 030
     Dates: start: 20111114

REACTIONS (1)
  - Hydrocele [Recovering/Resolving]
